FAERS Safety Report 10038570 (Version 2)
Quarter: 2014Q2

REPORT INFORMATION
  Report Type: Spontaneous
  Country: US (occurrence: US)
  Receive Date: 20140326
  Receipt Date: 20140523
  Transmission Date: 20141212
  Serious: No
  Sender: FDA-Public Use
  Company Number: US-GILEAD-2014-0097711

PATIENT
  Age: 50 Year
  Sex: Male

DRUGS (3)
  1. LETAIRIS [Suspect]
     Indication: PULMONARY HYPERTENSION
     Dosage: 5 MG, QD
     Route: 065
     Dates: start: 20101117
  2. LETAIRIS [Suspect]
     Indication: PORTOPULMONARY HYPERTENSION
  3. REVATIO [Concomitant]
     Indication: PRODUCT USED FOR UNKNOWN INDICATION
     Route: 065

REACTIONS (1)
  - Syncope [Unknown]
